FAERS Safety Report 11171255 (Version 4)
Quarter: 2015Q3

REPORT INFORMATION
  Report Type: Report from Study
  Country: IT (occurrence: IT)
  Receive Date: 20150608
  Receipt Date: 20150831
  Transmission Date: 20151125
  Serious: Yes (Hospitalization)
  Sender: FDA-Public Use
  Company Number: IT-PFIZER INC-2015185829

PATIENT
  Age: 67 Year
  Sex: Male

DRUGS (9)
  1. INLYTA [Suspect]
     Active Substance: AXITINIB
     Indication: SALIVARY GLAND CANCER
     Dosage: 5 MG, 2X/DAY
     Route: 048
     Dates: start: 20150506, end: 20150521
  2. ENALAPRIL [Concomitant]
     Active Substance: ENALAPRIL
     Indication: HYPERTENSION
     Dosage: 2.5 MG, DAILY
     Route: 048
  3. FERROUS SULFATE [Concomitant]
     Active Substance: FERROUS SULFATE\FERROUS SULFATE, DRIED
     Indication: ANAEMIA
     Dosage: 1 DF, DAILY
  4. DILATREND [Concomitant]
     Active Substance: CARVEDILOL
     Indication: HYPERTENSION
     Dosage: 12.5 MG, 2X/DAY
  5. TRIATEC /00885601/ [Concomitant]
     Active Substance: RAMIPRIL
     Indication: HYPERTENSION
     Dosage: 2.5 MG, 2X/DAY
     Route: 048
  6. XATRAL [Concomitant]
     Active Substance: ALFUZOSIN
     Indication: BENIGN PROSTATIC HYPERPLASIA
     Dosage: 1 DF, DAILY
  7. LYRICA [Concomitant]
     Active Substance: PREGABALIN
     Indication: TUMOUR PAIN
     Dosage: 75 MG, 2X/DAY
     Route: 048
  8. TARGIN [Concomitant]
     Active Substance: NALOXONE HYDROCHLORIDE\OXYCODONE HYDROCHLORIDE
     Indication: TUMOUR PAIN
     Dosage: 20 MG, 2X/DAY
     Route: 048
  9. PANTOPRAZOLE [Concomitant]
     Active Substance: PANTOPRAZOLE SODIUM
     Indication: PROPHYLAXIS
     Dosage: 20 MG, DAILY
     Route: 048

REACTIONS (1)
  - Acute kidney injury [Not Recovered/Not Resolved]

NARRATIVE: CASE EVENT DATE: 20150521
